FAERS Safety Report 9651017 (Version 1)
Quarter: 2013Q4

REPORT INFORMATION
  Report Type: Spontaneous
  Country: SE (occurrence: SE)
  Receive Date: 20131029
  Receipt Date: 20131029
  Transmission Date: 20140711
  Serious: Yes (Other)
  Sender: FDA-Public Use
  Company Number: PHHY2013SE120703

PATIENT
  Sex: Female

DRUGS (2)
  1. RITALIN [Suspect]
     Dosage: UNK UKN, UNK
  2. MEDIKINET//METHYLPHENIDATE [Concomitant]
     Dosage: UNK UKN, UNK

REACTIONS (1)
  - Drug abuse [Recovered/Resolved]
